FAERS Safety Report 8470430-X (Version None)
Quarter: 2012Q2

REPORT INFORMATION
  Report Type: 
  Country: None (occurrence: None)
  Receive Date: 20120620
  Receipt Date: 20120607
  Transmission Date: 20120825
  Serious: Yes (Hospitalization, Other)
  Sender: FDA-Public Use
  Company Number: AUR-APL-2012-02662

PATIENT
  Sex: Female

DRUGS (3)
  1. VENLAFAXINE HCL [Suspect]
     Indication: DEPRESSION
     Dosage: (75 MG)
  2. CLONAZEPAM [Suspect]
     Indication: PRODUCT USED FOR UNKNOWN INDICATION
  3. EFFEXOR XR [Suspect]
     Indication: DEPRESSION

REACTIONS (11)
  - FATIGUE [None]
  - TOOTH FRACTURE [None]
  - JAW DISORDER [None]
  - ABNORMAL DREAMS [None]
  - WITHDRAWAL SYNDROME [None]
  - NAUSEA [None]
  - INCOHERENT [None]
  - CONFUSIONAL STATE [None]
  - VERTIGO [None]
  - DELUSION [None]
  - VOMITING [None]
